FAERS Safety Report 6736516-2 (Version None)
Quarter: 2010Q2

REPORT INFORMATION
  Report Type: 
  Country: None (occurrence: None)
  Receive Date: 20100521
  Receipt Date: 20100108
  Transmission Date: 20101027
  Serious: Yes (Hospitalization, Other)
  Sender: FDA-Public Use
  Company Number: GB-WYE-G05181409

PATIENT
  Sex: Female

DRUGS (2)
  1. GEMTUZUMAB OZOGAMICIN [Suspect]
     Indication: ACUTE MYELOID LEUKAEMIA
     Dosage: UNKNOWN
     Dates: start: 20090512, end: 20090701
  2. CLOFARABINE [Suspect]
     Dosage: UNKNOWN
     Dates: start: 20090512, end: 20090701

REACTIONS (1)
  - EYE INFECTION TOXOPLASMAL [None]
